FAERS Safety Report 8900459 (Version 1)
Quarter: 2012Q4

REPORT INFORMATION
  Report Type: 
  Country: US (occurrence: US)
  Receive Date: 20121109
  Receipt Date: 20121109
  Transmission Date: 20130627
  Serious: Yes (Other)
  Sender: FDA-Public Use
  Company Number: PHEH2012US007584

PATIENT
  Sex: Female
  Weight: 56.69 kg

DRUGS (2)
  1. TASIGNA [Suspect]
     Indication: CHRONIC MYELOID LEUKAEMIA
     Dosage: 300 mg, BID
     Route: 048
     Dates: start: 20111017
  2. TASIGNA [Suspect]
     Dosage: 150 mg, BID
     Route: 048
     Dates: start: 20120512

REACTIONS (2)
  - Postmenopausal haemorrhage [Unknown]
  - Vaginal discharge [Unknown]
